FAERS Safety Report 21936469 (Version 1)
Quarter: 2023Q1

REPORT INFORMATION
  Report Type: Report from Study
  Country: US (occurrence: US)
  Receive Date: 20230201
  Receipt Date: 20230201
  Transmission Date: 20230418
  Serious: No
  Sender: FDA-Public Use
  Company Number: US-INCYTE CORPORATION-2020IN013003

PATIENT

DRUGS (2)
  1. PEMIGATINIB [Suspect]
     Active Substance: PEMIGATINIB
     Indication: Cholangiocarcinoma
     Dosage: 13.5 MILLIGRAM
     Route: 065
     Dates: start: 202010
  2. SEVELAMER [Concomitant]
     Active Substance: SEVELAMER
     Indication: Blood phosphorus
     Route: 065

REACTIONS (4)
  - Skin ulcer [Unknown]
  - Stress [Unknown]
  - Stomatitis [Unknown]
  - Fatigue [Unknown]
